FAERS Safety Report 5223106-6 (Version None)
Quarter: 2007Q1

REPORT INFORMATION
  Report Type: 
  Country: None (occurrence: None)
  Receive Date: 20070122
  Receipt Date: 20070105
  Transmission Date: 20070707
  Serious: Yes (Death, Congenital Anomaly, Other)
  Sender: FDA-Public Use
  Company Number: STI-2007-00023

PATIENT
  Sex: Male

DRUGS (2)
  1. 222A ERYTHROMYCIN TOPICAL (ERYTHROMYCIN TOPICAL) (ERYTHROMYCIN) [Suspect]
  2. PREDNISOLONE [Suspect]

REACTIONS (7)
  - CAESAREAN SECTION [None]
  - CONGENITAL ANOMALY [None]
  - DRUG EXPOSURE DURING PREGNANCY [None]
  - FOETAL ARRHYTHMIA [None]
  - INTRA-UTERINE DEATH [None]
  - OLIGOHYDRAMNIOS [None]
  - STILLBIRTH [None]
